FAERS Safety Report 6300657-4 (Version None)
Quarter: 2009Q3

REPORT INFORMATION
  Report Type: 
  Country: None (occurrence: None)
  Receive Date: 20090805
  Receipt Date: 20090723
  Transmission Date: 20100115
  Serious: Yes (Other)
  Sender: FDA-Public Use
  Company Number: US-1170389

PATIENT
  Age: 66 Year
  Sex: Male
  Weight: 82.5547 kg

DRUGS (12)
  1. ISOPTO CARBACHOL 3 % OPHTHALMIC SOLUTION [Suspect]
     Indication: INTRAOCULAR PRESSURE DECREASED
     Dosage: 1 GTT IMMEDIATELY POST-OP OPHTHALMIC
     Route: 047
  2. LIDOCAINE HYDROCHLORIDE [Concomitant]
  3. BSS [Concomitant]
  4. XYLOCAINE [Concomitant]
  5. EPINEPHRINE [Concomitant]
  6. DUOVISC [Concomitant]
  7. MYDRIACYL [Concomitant]
  8. CYCLOGYL [Concomitant]
  9. ACULAR [Concomitant]
  10. ZYMAR [Concomitant]
  11. AK-DILATE [Concomitant]
  12. TETRACAINE HYDROCHLORIDE [Concomitant]

REACTIONS (3)
  - BLOOD PRESSURE DECREASED [None]
  - HEART RATE DECREASED [None]
  - NAUSEA [None]
